FAERS Safety Report 7561204-2 (Version None)
Quarter: 2011Q2

REPORT INFORMATION
  Report Type: 
  Country: None (occurrence: None)
  Receive Date: 20110621
  Receipt Date: 20110118
  Transmission Date: 20111010
  Serious: No
  Sender: FDA-Public Use
  Company Number: US-ASTRAZENECA-2011SE03029

PATIENT
  Sex: Female

DRUGS (3)
  1. EMERGENCY INHALER [Concomitant]
  2. PULMICORT FLEXHALER [Suspect]
     Indication: ASTHMA
     Dosage: 90 MCG OFF AND ON
     Route: 055
  3. SINGULAIR [Concomitant]

REACTIONS (3)
  - WRONG TECHNIQUE IN DRUG USAGE PROCESS [None]
  - APHTHOUS STOMATITIS [None]
  - DRUG DOSE OMISSION [None]
